FAERS Safety Report 21160292 (Version 1)
Quarter: 2022Q3

REPORT INFORMATION
  Report Type: Spontaneous
  Country: US (occurrence: None)
  Receive Date: 20220801
  Receipt Date: 20220801
  Transmission Date: 20221027
  Serious: No
  Sender: FDA-Public Use
  Company Number: None

PATIENT
  Sex: Female

DRUGS (1)
  1. HUMIRA [Suspect]
     Active Substance: ADALIMUMAB
     Indication: Hidradenitis
     Dates: start: 20220626

REACTIONS (5)
  - Peripheral swelling [None]
  - Peripheral swelling [None]
  - Mood swings [None]
  - Pruritus [None]
  - Pain in extremity [None]
